FAERS Safety Report 10513190 (Version 4)
Quarter: 2015Q2

REPORT INFORMATION
  Report Type: Spontaneous
  Country: CA (occurrence: CA)
  Receive Date: 20141013
  Receipt Date: 20150427
  Transmission Date: 20150821
  Serious: Yes (Hospitalization, Other)
  Sender: FDA-Public Use
  Company Number: CA-JNJFOC-20141001830

PATIENT
  Age: 1 Year
  Sex: Female
  Weight: 11.79 kg

DRUGS (1)
  1. POLYSPORIN COMPLETE OINTMENT [Suspect]
     Active Substance: BACITRACIN ZINC\GRAMICIDIN\LIDOCAINE\POLYMYXIN B SULFATE
     Indication: ACCIDENTAL EXPOSURE TO PRODUCT
     Dosage: ESTIMATED HALF A TEASPOON OR TEASPOON.
     Route: 048
     Dates: start: 20140912, end: 20140912

REACTIONS (5)
  - Seizure [Recovered/Resolved]
  - Product packaging issue [Unknown]
  - Hypersomnia [Unknown]
  - Accidental exposure to product [Unknown]
  - Overdose [Unknown]

NARRATIVE: CASE EVENT DATE: 20140912
